FAERS Safety Report 8368396-6 (Version None)
Quarter: 2012Q2

REPORT INFORMATION
  Report Type: 
  Country: None (occurrence: None)
  Receive Date: 20120517
  Receipt Date: 20120504
  Transmission Date: 20120825
  Serious: Yes (Hospitalization)
  Sender: FDA-Public Use
  Company Number: US-ELI_LILLY_AND_COMPANY-US201102005230

PATIENT
  Sex: Male

DRUGS (3)
  1. FORTEO [Suspect]
     Indication: OSTEOPOROSIS
     Dosage: 20 UG, DAILY (1/D)
     Route: 065
     Dates: start: 20110116
  2. FORTEO [Suspect]
     Dosage: 20 UG, QD
     Dates: end: 20120201
  3. FORTEO [Suspect]
     Dosage: 20 UG, QD

REACTIONS (2)
  - HOSPITALISATION [None]
  - PAIN [None]
